FAERS Safety Report 8230143-6 (Version None)
Quarter: 2012Q1

REPORT INFORMATION
  Report Type: 
  Country: None (occurrence: None)
  Receive Date: 20120323
  Receipt Date: 20120319
  Transmission Date: 20120608
  Serious: No
  Sender: FDA-Public Use
  Company Number: US-PFIZER INC-2012072337

PATIENT
  Sex: Female

DRUGS (8)
  1. ULTRAM [Suspect]
     Dosage: UNK
  2. TALWIN [Suspect]
     Dosage: UNK
  3. DARVON [Suspect]
     Dosage: UNK
  4. TYLOX [Suspect]
     Dosage: UNK
  5. PREDNISONE TAB [Suspect]
     Dosage: UNK
  6. INDERAL [Suspect]
     Dosage: UNK
  7. NALBUPHINE HCL [Suspect]
     Dosage: UNK
  8. BENADRYL [Suspect]
     Dosage: UNK

REACTIONS (1)
  - DRUG HYPERSENSITIVITY [None]
